FAERS Safety Report 14277346 (Version 2)
Quarter: 2018Q1

REPORT INFORMATION
  Report Type: Spontaneous
  Country: FR (occurrence: FR)
  Receive Date: 20171211
  Receipt Date: 20180126
  Transmission Date: 20180508
  Serious: Yes (Hospitalization, Other)
  Sender: FDA-Public Use
  Company Number: FR-OTSUKA-2017_025256

PATIENT
  Age: 65 Year
  Sex: Male

DRUGS (1)
  1. ABILIFY [Suspect]
     Active Substance: ARIPIPRAZOLE
     Indication: CYCLOTHYMIC DISORDER
     Dosage: 15 MG, QD
     Route: 048
     Dates: start: 201705

REACTIONS (7)
  - Drug intolerance [Unknown]
  - Product use in unapproved indication [Unknown]
  - Acute kidney injury [Unknown]
  - Erysipelas [Unknown]
  - Drug effect decreased [Unknown]
  - Sepsis [Unknown]
  - Encephalopathy [Unknown]
